FAERS Safety Report 4534661-3 (Version None)
Quarter: 2004Q4

REPORT INFORMATION
  Report Type: 
  Country: None (occurrence: None)
  Receive Date: 20041214
  Receipt Date: 20040917
  Transmission Date: 20050328
  Serious: No
  Sender: FDA-Public Use
  Company Number: USA040466367

PATIENT
  Age: 40 Year
  Sex: Male
  Weight: 93 kg

DRUGS (1)
  1. CAILIS (TADALAFIL) [Suspect]
     Dosage: 20 MG
     Dates: start: 20040429

REACTIONS (3)
  - DRUG INEFFECTIVE [None]
  - SPONTANEOUS PENILE ERECTION [None]
  - THERAPEUTIC RESPONSE DECREASED [None]
